FAERS Safety Report 16619063 (Version 2)
Quarter: 2021Q1

REPORT INFORMATION
  Report Type: Spontaneous
  Country: JP (occurrence: JP)
  Receive Date: 20190723
  Receipt Date: 20210201
  Transmission Date: 20210419
  Serious: Yes (Death, Other)
  Sender: FDA-Public Use
  Company Number: JP-009507513-1907JPN002274J

PATIENT
  Age: 71 Year

DRUGS (5)
  1. ZINPLAVA [Suspect]
     Active Substance: BEZLOTOXUMAB
     Indication: INFECTION PROPHYLAXIS
     Dosage: UNK
     Route: 041
     Dates: start: 20180612
  2. VANCOMYCIN HYDROCHLORIDE. [Concomitant]
     Active Substance: VANCOMYCIN HYDROCHLORIDE
     Indication: CLOSTRIDIUM DIFFICILE INFECTION
     Dosage: 500 MILLIGRAM X4
     Route: 048
     Dates: start: 20180611, end: 20180615
  3. MICAFUNGIN SODIUM [Concomitant]
     Active Substance: MICAFUNGIN SODIUM
     Dosage: UNK
     Route: 065
     Dates: start: 20180611
  4. MEROPENEM. [Concomitant]
     Active Substance: MEROPENEM
     Dosage: UNK
     Route: 065
     Dates: start: 20180611
  5. TEICOPLANIN [Concomitant]
     Active Substance: TEICOPLANIN
     Dosage: UNK
     Route: 065
     Dates: start: 20180611

REACTIONS (5)
  - Decreased activity [Unknown]
  - Eating disorder [Unknown]
  - Cardiac valve vegetation [Unknown]
  - Multiple organ dysfunction syndrome [Fatal]
  - Cognitive disorder [Unknown]

NARRATIVE: CASE EVENT DATE: 2018
